FAERS Safety Report 9148824 (Version 2)
Quarter: 2013Q1

REPORT INFORMATION
  Report Type: Report from Study
  Country: US (occurrence: US)
  Receive Date: 20130308
  Receipt Date: 20130328
  Transmission Date: 20140127
  Serious: Yes (Hospitalization)
  Sender: FDA-Public Use
  Company Number: US-JNJFOC-20130300379

PATIENT
  Age: 27 Year
  Sex: Female
  Weight: 63.2 kg

DRUGS (15)
  1. USTEKINUMAB [Suspect]
     Route: 058
  2. USTEKINUMAB [Suspect]
     Indication: CROHN^S DISEASE
     Route: 058
     Dates: start: 20121206, end: 20121206
  3. DIPHENOXYLATE/ATROPINE [Concomitant]
     Indication: DIARRHOEA
     Dosage: 2.5/0.025 MG, 1-2 TABLETS TID AS NEEDED, NOT TO EXCEED 6/DAY
     Route: 048
     Dates: start: 20121031
  4. AVIANE [Concomitant]
     Dosage: 0.1-20 MG-MCG
     Route: 048
     Dates: start: 20101021
  5. PROCHLORPERAZINE MALEATE [Concomitant]
     Indication: NAUSEA
     Route: 048
     Dates: start: 20120316
  6. METHOTREXATE [Concomitant]
  7. ULTRAM [Concomitant]
     Indication: PAIN
  8. PREDNISONE [Concomitant]
     Indication: CROHN^S DISEASE
     Dates: start: 20130124
  9. OMEPRAZOLE SODIUM [Concomitant]
     Indication: DYSPEPSIA
     Route: 048
     Dates: start: 20111216
  10. IRON [Concomitant]
     Route: 048
     Dates: start: 2012
  11. ERGOCALCIFEROL [Concomitant]
     Indication: VITAMIN D DEFICIENCY
     Route: 048
     Dates: start: 20130213
  12. DAYQUIL [Concomitant]
     Route: 048
     Dates: start: 20121227
  13. FOLIC ACID [Concomitant]
     Route: 048
     Dates: start: 20120516
  14. ONDANSETRON HCL [Concomitant]
     Indication: NAUSEA
     Route: 048
     Dates: start: 20121212
  15. ELECTROLYTE SOLUTION [Concomitant]
     Dates: start: 20130220

REACTIONS (1)
  - Large intestinal stenosis [Not Recovered/Not Resolved]
